FAERS Safety Report 5627048-3 (Version None)
Quarter: 2008Q1

REPORT INFORMATION
  Report Type: 
  Country: None (occurrence: None)
  Receive Date: 20080117
  Receipt Date: 20070808
  Transmission Date: 20080703
  Serious: Yes (Hospitalization)
  Sender: FDA-Public Use
  Company Number: E2020-01514-SPO-US

PATIENT
  Age: 73 Year
  Sex: Female

DRUGS (4)
  1. ARICEPT [Suspect]
     Indication: DEMENTIA ALZHEIMER'S TYPE
     Dosage: 10 MG, 1 IN 1 D, ORAL ; 10 MG, 1 IN 1 D, ORAL
     Route: 048
     Dates: start: 20070701, end: 20070701
  2. ARICEPT [Suspect]
     Indication: DEMENTIA ALZHEIMER'S TYPE
     Dosage: 10 MG, 1 IN 1 D, ORAL ; 10 MG, 1 IN 1 D, ORAL
     Route: 048
     Dates: start: 20070701, end: 20070730
  3. LIPITOR [Concomitant]
  4. NAMENDA [Concomitant]

REACTIONS (3)
  - BRADYCARDIA [None]
  - RECTAL HAEMORRHAGE [None]
  - SYNCOPE [None]
